FAERS Safety Report 7356050-9 (Version None)
Quarter: 2011Q1

REPORT INFORMATION
  Report Type: 
  Country: None (occurrence: None)
  Receive Date: 20110316
  Receipt Date: 20110307
  Transmission Date: 20110831
  Serious: Yes (Other)
  Sender: FDA-Public Use
  Company Number: NL-ELI_LILLY_AND_COMPANY-NL201102005867

PATIENT
  Age: 12 Year
  Sex: Female
  Weight: 29 kg

DRUGS (2)
  1. STRATTERA [Suspect]
     Indication: ATTENTION DEFICIT/HYPERACTIVITY DISORDER
     Dosage: 18 MG, DAILY (1/D)
     Route: 048
     Dates: start: 20101219, end: 20101219
  2. RISPERDAL [Concomitant]
     Indication: TOURETTE'S DISORDER
     Dosage: 1.2 MG, DAILY (1/D)

REACTIONS (2)
  - ARRHYTHMIA [None]
  - DRUG INTERACTION [None]
